FAERS Safety Report 8076252-6 (Version None)
Quarter: 2012Q1

REPORT INFORMATION
  Report Type: 
  Country: None (occurrence: None)
  Receive Date: 20120127
  Receipt Date: 20120116
  Transmission Date: 20120608
  Serious: Yes (Other)
  Sender: FDA-Public Use
  Company Number: KR-ROCHE-1031146

PATIENT

DRUGS (15)
  1. HERCEPTIN [Suspect]
     Indication: BREAST CANCER
  2. DOCETAXEL [Suspect]
  3. DOXORUBICIN HCL [Suspect]
     Indication: NEOPLASM MALIGNANT
  4. DOCETAXEL [Suspect]
     Indication: NEOPLASM MALIGNANT
  5. CETUXIMAB [Suspect]
     Indication: NEOPLASM MALIGNANT
  6. CYCLOPHOSPHAMIDE [Suspect]
     Indication: NEOPLASM MALIGNANT
  7. EPIRUBICIN HYDROCHLORIDE [Suspect]
     Indication: NEOPLASM MALIGNANT
  8. AVASTIN [Suspect]
     Indication: NEOPLASM MALIGNANT
  9. IRINOTECAN HYDROCHLORIDE [Suspect]
     Indication: NEOPLASM MALIGNANT
  10. XELODA [Suspect]
     Indication: NEOPLASM MALIGNANT
  11. CISPLATIN [Suspect]
     Indication: NEOPLASM MALIGNANT
  12. LEUCOVORIN CALCIUM [Suspect]
     Indication: NEOPLASM MALIGNANT
  13. GEMCITABINE HYDROCHLORIDE [Suspect]
     Indication: NEOPLASM MALIGNANT
  14. FLUOROURACIL [Suspect]
     Indication: NEOPLASM MALIGNANT
  15. PACLITAXEL [Suspect]
     Indication: NEOPLASM MALIGNANT

REACTIONS (6)
  - MYALGIA [None]
  - STOMATITIS [None]
  - PYREXIA [None]
  - NAUSEA [None]
  - VOMITING [None]
  - PERIPHERAL SENSORY NEUROPATHY [None]
